FAERS Safety Report 9046464 (Version 1)
Quarter: 2013Q1

REPORT INFORMATION
  Report Type: Spontaneous
  Country: US (occurrence: None)
  Receive Date: 20130128
  Receipt Date: 20130128
  Transmission Date: 20140127
  Serious: Yes (Life-Threatening)
  Sender: FDA-Public Use
  Company Number: None

PATIENT
  Age: 39 Year
  Sex: Female
  Weight: 78.02 kg

DRUGS (1)
  1. MEDROXYPROGESTERONE ACETATE [Suspect]
     Indication: CONTRACEPTION
     Dosage: 1 ML  EVERY THREE MONTHS  IM?01/22/2013  -  01/22/2013
     Route: 030
     Dates: start: 20130122, end: 20130122

REACTIONS (4)
  - Dizziness [None]
  - Feeling abnormal [None]
  - Syncope [None]
  - Hyperhidrosis [None]
